FAERS Safety Report 6043692-6 (Version None)
Quarter: 2009Q1

REPORT INFORMATION
  Report Type: 
  Country: None (occurrence: None)
  Receive Date: 20090115
  Receipt Date: 20090115
  Transmission Date: 20090719
  Serious: Yes (Other)
  Sender: FDA-Public Use
  Company Number: None

PATIENT
  Age: 68 Year
  Sex: Female
  Weight: 63.5036 kg

DRUGS (1)
  1. ALENDRONATE SODIUM [Suspect]
     Indication: BONE DISORDER
     Dosage: 1 TABLET 1X A WEEK
     Dates: start: 20081101, end: 20081205

REACTIONS (2)
  - INFLAMMATION [None]
  - MYALGIA [None]
